FAERS Safety Report 15876960 (Version 1)
Quarter: 2019Q1

REPORT INFORMATION
  Report Type: Spontaneous
  Country: FR (occurrence: FR)
  Receive Date: 20190128
  Receipt Date: 20190128
  Transmission Date: 20190417
  Serious: Yes (Hospitalization)
  Sender: FDA-Public Use
  Company Number: FR-SUN PHARMACEUTICAL INDUSTRIES LTD-2019RR-197174

PATIENT
  Age: 49 Year
  Sex: Female

DRUGS (3)
  1. TOMUDEX 2 MG, POUDRE POUR SOLUTION POUR PERFUSION [Concomitant]
     Active Substance: RALTITREXED
     Indication: COLON CANCER
     Dosage: 5 MILLIGRAM
     Route: 042
     Dates: start: 20171220, end: 20171220
  2. OXALIPLATIN. [Suspect]
     Active Substance: OXALIPLATIN
     Indication: COLON CANCER
     Dosage: 210 MILLIGRAM
     Route: 042
     Dates: start: 20171220, end: 20171220
  3. ZOPHREN 2 MG/ML, SOLUTION INJECTABLE EN AMPOULE (I.V.) [Concomitant]
     Active Substance: ONDANSETRON
     Indication: PROPHYLAXIS OF NAUSEA AND VOMITING
     Dosage: UNK
     Route: 042
     Dates: start: 20171220, end: 20171220

REACTIONS (1)
  - Bronchospasm [Recovered/Resolved]

NARRATIVE: CASE EVENT DATE: 20171220
